FAERS Safety Report 7138495-5 (Version None)
Quarter: 2010Q4

REPORT INFORMATION
  Report Type: 
  Country: None (occurrence: None)
  Receive Date: 20101206
  Receipt Date: 20101126
  Transmission Date: 20110411
  Serious: Yes (Other)
  Sender: FDA-Public Use
  Company Number: JP-ASTRAZENECA-2010SE56708

PATIENT
  Age: 85 Year
  Sex: Female

DRUGS (1)
  1. IRESSA [Suspect]
     Route: 048

REACTIONS (1)
  - CARDIAC FAILURE ACUTE [None]
